FAERS Safety Report 23152151 (Version 2)
Quarter: 2024Q4

REPORT INFORMATION
  Report Type: Spontaneous
  Country: US (occurrence: US)
  Receive Date: 20231107
  Receipt Date: 20241223
  Transmission Date: 20250115
  Serious: Yes (Hospitalization)
  Sender: AMGEN
  Company Number: US-AMGEN-USASP2023196784

PATIENT
  Age: 46 Year
  Sex: Female

DRUGS (7)
  1. OTEZLA [Suspect]
     Active Substance: APREMILAST
     Indication: Psoriatic arthropathy
     Dosage: 30 MILLIGRAM, BID
     Route: 048
     Dates: start: 20160408
  2. OTEZLA [Suspect]
     Active Substance: APREMILAST
     Indication: Multiple sclerosis
     Dosage: 30 MILLIGRAM, BID
     Route: 048
  3. VITAMIN B COMPLEX [Concomitant]
     Active Substance: CYANOCOBALAMIN\DEXPANTHENOL\NIACINAMIDE\PYRIDOXINE HYDROCHLORIDE\RIBOFLAVIN 5^-PHOSPHATE SODIUM\THIA
     Dosage: UNK
  4. CITALOPRAM [Concomitant]
     Active Substance: CITALOPRAM
     Dosage: 40 MILLIGRAM
  5. OCREVUS [Concomitant]
     Active Substance: OCRELIZUMAB
     Dosage: 300/10ML
  6. OMEPRAZOLE [Concomitant]
     Active Substance: OMEPRAZOLE
     Dosage: 20 MILLIGRAM
  7. PROVIGIL [Concomitant]
     Active Substance: MODAFINIL
     Dosage: 200 MILLIGRAM

REACTIONS (4)
  - Complication associated with device [Recovered/Resolved]
  - Psoriasis [Recovered/Resolved]
  - Therapy non-responder [Unknown]
  - Headache [Unknown]

NARRATIVE: CASE EVENT DATE: 20230801
